FAERS Safety Report 8353027-1 (Version None)
Quarter: 2012Q2

REPORT INFORMATION
  Report Type: 
  Country: None (occurrence: None)
  Receive Date: 20120511
  Receipt Date: 20120510
  Transmission Date: 20120825
  Serious: Yes (Hospitalization, Other)
  Sender: FDA-Public Use
  Company Number: FR-BRISTOL-MYERS SQUIBB COMPANY-16544249

PATIENT
  Age: 90 Year
  Sex: Male

DRUGS (8)
  1. ALUMINUM HYDROXIDE AND MAGNESIUM TRISILICATE [Concomitant]
     Route: 048
  2. ACETAMINOPHEN [Concomitant]
     Route: 048
  3. COUMADIN [Suspect]
     Indication: ATRIAL FIBRILLATION
     Route: 048
     Dates: start: 20120201, end: 20120317
  4. SPASFON [Concomitant]
     Route: 048
  5. MODOPAR [Concomitant]
     Route: 048
  6. PANTOPRAZOLE SODIUM [Concomitant]
     Route: 048
  7. DIGOXIN [Concomitant]
     Route: 048
  8. LASIX [Concomitant]
     Route: 048

REACTIONS (3)
  - INTERNATIONAL NORMALISED RATIO INCREASED [None]
  - PNEUMONIA [None]
  - HAEMATURIA [None]
